FAERS Safety Report 11950148 (Version 1)
Quarter: 2016Q1

REPORT INFORMATION
  Report Type: Spontaneous
  Country: US (occurrence: None)
  Receive Date: 20160122
  Receipt Date: 20160122
  Transmission Date: 20160526
  Serious: Yes (Other)
  Sender: FDA-Public Use
  Company Number: None

PATIENT
  Age: 81 Year
  Sex: Male

DRUGS (1)
  1. XTANDI [Suspect]
     Active Substance: ENZALUTAMIDE

REACTIONS (4)
  - Weight decreased [None]
  - Dysgeusia [None]
  - Hyponatraemia [None]
  - Confusional state [None]

NARRATIVE: CASE EVENT DATE: 20160120
